FAERS Safety Report 6220970-9 (Version None)
Quarter: 2009Q2

REPORT INFORMATION
  Report Type: 
  Country: None (occurrence: None)
  Receive Date: 20090605
  Receipt Date: 20090528
  Transmission Date: 20091009
  Serious: Yes (Hospitalization)
  Sender: FDA-Public Use
  Company Number: CZ-WYE-H09542209

PATIENT
  Age: 81 Year
  Sex: Male

DRUGS (2)
  1. TEMSIROLIMUS (TEMSIROLIMUS, CONCENTRATE FOR   INFUSION) [Suspect]
     Indication: RENAL CELL CARCINOMA
     Dosage: 25 MG 1X PER 1 WK INTRAVENOUS
     Route: 042
     Dates: start: 20081112, end: 20090527
  2. BEVACIZUMAB, TEST ARTICLE IN TEMSIROLIMUS STUDY [Suspect]
     Indication: RENAL CELL CARCINOMA
     Dosage: 580 MG 1X PER 2 WK INTRAVENOUS
     Route: 042
     Dates: start: 20081112, end: 20090407

REACTIONS (1)
  - GENERAL PHYSICAL HEALTH DETERIORATION [None]
